FAERS Safety Report 8917573 (Version 1)
Quarter: 2012Q4

REPORT INFORMATION
  Report Type: Report from Study
  Country: JP (occurrence: JP)
  Receive Date: 20121120
  Receipt Date: 20121120
  Transmission Date: 20130627
  Serious: Yes (Other)
  Sender: FDA-Public Use
  Company Number: JP-VERTEX PHARMACEUTICAL INC.-2012-024697

PATIENT
  Age: 72 Year
  Sex: Male

DRUGS (14)
  1. VX-950 (TELAPREVIR) [Suspect]
     Indication: CHRONIC HEPATITIS C
     Dosage: 2250 mg, qd
     Route: 048
     Dates: start: 20120809, end: 20120905
  2. VX-950 (TELAPREVIR) [Suspect]
     Dosage: 1500 mg, qd
     Route: 048
     Dates: start: 20120906, end: 20121018
  3. REBETOL [Suspect]
     Indication: CHRONIC HEPATITIS C
     Dosage: 800 mg, qd
     Route: 048
     Dates: start: 20120809, end: 20120823
  4. REBETOL [Suspect]
     Dosage: 600 mg, qd
     Route: 048
     Dates: start: 20120824, end: 20120905
  5. REBETOL [Suspect]
     Dosage: 400 mg, qd
     Route: 048
     Dates: start: 20120906, end: 20120919
  6. REBETOL [Suspect]
     Dosage: 200 mg, qd
     Route: 048
     Dates: start: 20120920
  7. PEGINTRON                          /01543001/ [Suspect]
     Indication: CHRONIC HEPATITIS C
     Dosage: 1.5 ?g/kg, qw
     Route: 058
     Dates: start: 20120809
  8. ALOSITOL [Suspect]
     Indication: HYPERURICAEMIA
     Dosage: 100 mg, qd
     Route: 048
     Dates: start: 20120811, end: 20120905
  9. ALOSITOL [Suspect]
     Dosage: 200 mg, qd
     Route: 048
     Dates: start: 20120906, end: 20121017
  10. ALOSITOL [Suspect]
     Dosage: 100 mg, qd
     Route: 048
     Dates: start: 20121018
  11. NORVASC [Concomitant]
     Dosage: 5 mg, qd
     Route: 048
  12. CARDENALIN [Concomitant]
     Dosage: 2 mg, qd
     Route: 048
  13. FERRUM                             /00023502/ [Concomitant]
     Dosage: 100 mg, qd
     Route: 048
     Dates: end: 20121017
  14. PROHEPARUM [Concomitant]
     Dosage: 6 DF, qd
     Route: 048
     Dates: end: 20121017

REACTIONS (1)
  - Erythema multiforme [Recovered/Resolved]
